FAERS Safety Report 11432350 (Version 2)
Quarter: 2015Q3

REPORT INFORMATION
  Report Type: Spontaneous
  Country: US (occurrence: US)
  Receive Date: 20150828
  Receipt Date: 20150911
  Transmission Date: 20151125
  Serious: Yes (Death, Life-Threatening, Hospitalization, Other)
  Sender: FDA-Public Use
  Company Number: US-009507513-1508USA013044

PATIENT
  Sex: Male
  Weight: 84.8 kg

DRUGS (2)
  1. JANUVIA [Suspect]
     Active Substance: SITAGLIPTIN PHOSPHATE
     Indication: TYPE 2 DIABETES MELLITUS
     Dosage: 100 MG, QD
     Route: 048
     Dates: start: 20070206, end: 20090325
  2. BYETTA [Suspect]
     Active Substance: EXENATIDE
     Indication: TYPE 2 DIABETES MELLITUS
     Dosage: 5 MICROGRAM, BID
     Dates: start: 20080115, end: 20080214

REACTIONS (39)
  - Device related infection [Unknown]
  - Diabetes mellitus inadequate control [Unknown]
  - Nail discolouration [Unknown]
  - Intestinal ulcer [Unknown]
  - Oesophageal carcinoma [Unknown]
  - Urinary tract infection [Unknown]
  - Bacterial sepsis [Unknown]
  - Renal mass [Unknown]
  - Electrocardiogram T wave abnormal [Unknown]
  - Ventricular extrasystoles [Unknown]
  - Anaemia [Unknown]
  - Urinary tract infection [Unknown]
  - Weight decreased [Unknown]
  - Musculoskeletal discomfort [Unknown]
  - Gastrooesophageal reflux disease [Unknown]
  - Vision blurred [Unknown]
  - Adrenal mass [Unknown]
  - Pericarditis [Unknown]
  - Death [Fatal]
  - Radiotherapy [Unknown]
  - Functional gastrointestinal disorder [Unknown]
  - Bone disorder [Unknown]
  - Pulmonary mass [Unknown]
  - Depression [Unknown]
  - Pancreatic carcinoma metastatic [Unknown]
  - Pyelonephritis [Unknown]
  - Peripheral artery stenosis [Unknown]
  - Iliac artery occlusion [Unknown]
  - Stomatitis [Unknown]
  - Oesophagitis [Unknown]
  - Testis discomfort [Unknown]
  - Splenic vein thrombosis [Unknown]
  - Electrocardiogram abnormal [Unknown]
  - Leukocytosis [Unknown]
  - Diarrhoea [Unknown]
  - Back pain [Not Recovered/Not Resolved]
  - Metastases to lung [Unknown]
  - Pancreatitis [Unknown]
  - Prostatitis [Unknown]

NARRATIVE: CASE EVENT DATE: 200703
